FAERS Safety Report 6019503-1 (Version None)
Quarter: 2008Q4

REPORT INFORMATION
  Report Type: 
  Country: None (occurrence: None)
  Receive Date: 20081224
  Receipt Date: 20081217
  Transmission Date: 20090506
  Serious: Yes (Other)
  Sender: FDA-Public Use
  Company Number: US-PFIZER INC-2008157178

PATIENT
  Sex: Female
  Weight: 63.492 kg

DRUGS (4)
  1. LIPITOR [Suspect]
     Indication: BLOOD CHOLESTEROL INCREASED
     Dates: start: 20070101
  2. CRESTOR [Concomitant]
  3. GLIPIZIDE [Concomitant]
     Dosage: 1.25 MG, 2X/DAY
  4. METFORMIN/PIOGLITAZONE [Concomitant]
     Dosage: 15/850MG

REACTIONS (10)
  - BLOOD CHOLESTEROL INCREASED [None]
  - BLOOD GLUCOSE DECREASED [None]
  - CARTILAGE INJURY [None]
  - DECREASED APPETITE [None]
  - HEPATIC ENZYME INCREASED [None]
  - LYMPHOCYTE COUNT DECREASED [None]
  - PROTEIN URINE PRESENT [None]
  - RED BLOOD CELL COUNT DECREASED [None]
  - RED CELL DISTRIBUTION WIDTH DECREASED [None]
  - STRESS [None]
